FAERS Safety Report 4382780-7 (Version None)
Quarter: 2004Q2

REPORT INFORMATION
  Report Type: 
  Country: None (occurrence: None)
  Receive Date: 20040617
  Receipt Date: 20040607
  Transmission Date: 20050107
  Serious: Yes (Disabling)
  Sender: FDA-Public Use
  Company Number: HQWYE397309JUN04

PATIENT
  Age: 37 Year
  Sex: Female
  Weight: 79.45 kg

DRUGS (3)
  1. EFFEXOR XR [Suspect]
     Indication: PANIC ATTACK
     Dosage: SEE IMAGE
     Route: 048
     Dates: start: 20040101, end: 20040401
  2. EFFEXOR XR [Suspect]
     Indication: PANIC ATTACK
     Dosage: SEE IMAGE
     Route: 048
     Dates: start: 20040401, end: 20040529
  3. XANAX [Concomitant]

REACTIONS (9)
  - BRUXISM [None]
  - DIFFICULTY IN WALKING [None]
  - DIZZINESS [None]
  - DRUG INEFFECTIVE [None]
  - DRUG WITHDRAWAL SYNDROME [None]
  - FATIGUE [None]
  - IMPAIRED WORK ABILITY [None]
  - PAIN [None]
  - PAIN IN JAW [None]
